FAERS Safety Report 7076228 (Version 2)
Quarter: 2013Q4

REPORT INFORMATION
  Report Type: Spontaneous
  Country: US (occurrence: None)
  Receive Date: 20090803
  Receipt Date: 20131104
  Transmission Date: 20140711
  Serious: Yes (Other)
  Sender: FDA-Public Use
  Company Number: 2009S1005882

PATIENT
  Sex: Male

DRUGS (1)
  1. SODIUM PHOSPHATE [Suspect]
     Dosage: PO
     Route: 048
     Dates: start: 20080604, end: 20080604

REACTIONS (1)
  - Renal failure chronic [None]
